FAERS Safety Report 8964017 (Version 2)
Quarter: 2013Q1

REPORT INFORMATION
  Report Type: Spontaneous
  Country: US (occurrence: US)
  Receive Date: 20121214
  Receipt Date: 20130227
  Transmission Date: 20140127
  Serious: Yes (Hospitalization)
  Sender: FDA-Public Use
  Company Number: US-BAYER-2012-129119

PATIENT
  Age: 30 Year
  Sex: Female

DRUGS (6)
  1. YAZ [Suspect]
     Dosage: UNK
     Dates: start: 2007, end: 2008
  2. OCELLA [Suspect]
     Dosage: UNK
     Dates: start: 2007, end: 2008
  3. LEVOTHYROXINE [Concomitant]
     Dosage: UNK
     Dates: start: 2006
  4. SIMVASTATIN [Concomitant]
     Dosage: UNK
     Dates: start: 2006
  5. HCYCLORIN [Concomitant]
     Dosage: UNK
     Dates: start: 2006
  6. ZANTAC [Concomitant]
     Dosage: UNK
     Dates: start: 20121207

REACTIONS (9)
  - Thrombosis [None]
  - Deep vein thrombosis [None]
  - Pain [None]
  - General physical health deterioration [None]
  - Injury [None]
  - Emotional distress [None]
  - Pain [None]
  - Anxiety [None]
  - Anhedonia [None]
